FAERS Safety Report 8300212-0 (Version None)
Quarter: 2012Q2

REPORT INFORMATION
  Report Type: 
  Country: None (occurrence: None)
  Receive Date: 20120420
  Receipt Date: 20120411
  Transmission Date: 20120825
  Serious: Yes (Hospitalization, Other)
  Sender: FDA-Public Use
  Company Number: FR-PFIZER INC-2012096209

PATIENT
  Age: 82 Year
  Sex: Female

DRUGS (6)
  1. ASPIRIN [Concomitant]
     Dosage: UNK
     Dates: start: 20110401
  2. MIRTAZAPINE [Concomitant]
     Dosage: UNK
  3. BISOPROLOL FUMARATE [Interacting]
     Indication: ATRIAL FIBRILLATION
     Dosage: 5 MG, DAILY
     Route: 048
     Dates: start: 20110420, end: 20110529
  4. ARICEPT [Concomitant]
     Indication: MEMORY IMPAIRMENT
     Dosage: UNK
     Dates: end: 20110607
  5. BISOPROLOL FUMARATE [Interacting]
     Dosage: 7.5 MG, DAILY
     Route: 048
     Dates: start: 20110530, end: 20110607
  6. CORDARONE [Suspect]
     Indication: ATRIAL FIBRILLATION
     Dosage: 200 MG, DAILY
     Route: 048
     Dates: start: 20110420

REACTIONS (5)
  - SINUS BRADYCARDIA [None]
  - RENAL FAILURE [None]
  - DRUG INTERACTION [None]
  - HEADACHE [None]
  - DYSPHONIA [None]
